FAERS Safety Report 8675671 (Version 3)
Quarter: 2012Q4

REPORT INFORMATION
  Report Type: 
  Country: SE (occurrence: SE)
  Receive Date: 20120720
  Receipt Date: 20120910
  Transmission Date: 20130627
  Serious: Yes (Other)
  Sender: FDA-Public Use
  Company Number: SE-ROCHE-1090044

PATIENT
  Age: 72 Year
  Sex: Female

DRUGS (1)
  1. BONDRONAT [Suspect]
     Indication: OSTEOPOROSIS
     Route: 065
     Dates: end: 20110801

REACTIONS (1)
  - Osteonecrosis [Not Recovered/Not Resolved]
